FAERS Safety Report 21349665 (Version 1)
Quarter: 2022Q3

REPORT INFORMATION
  Report Type: Spontaneous
  Country: US (occurrence: None)
  Receive Date: 20220916
  Receipt Date: 20220916
  Transmission Date: 20221027
  Serious: No
  Sender: FDA-Public Use
  Company Number: None

PATIENT
  Age: 31 Year
  Sex: Male
  Weight: 68.49 kg

DRUGS (2)
  1. WELIREG [Suspect]
     Active Substance: BELZUTIFAN
     Indication: Chronic infantile neurological cutaneous and articular syndrome
     Dosage: FREQUENCY : DAILY;?
     Route: 048
  2. MULTPLE VITAMINS [Concomitant]

REACTIONS (2)
  - Anaemia [None]
  - Fatigue [None]
